FAERS Safety Report 8380943-7 (Version None)
Quarter: 2012Q2

REPORT INFORMATION
  Report Type: 
  Country: None (occurrence: None)
  Receive Date: 20120515
  Receipt Date: 20120503
  Transmission Date: 20120825
  Serious: Yes (Congenital Anomaly)
  Sender: FDA-Public Use
  Company Number: AEGBR201200236

PATIENT

DRUGS (5)
  1. INTRALIPID 30% [Suspect]
     Indication: PARENTERAL NUTRITION
     Dosage: TRPL
     Route: 064
  2. CYCLOGEST [Concomitant]
  3. PREDNISOLONE [Concomitant]
  4. ASPIRIN [Concomitant]
  5. IMMUNE GLOBULIN INTRAVENOUS (HUMAN) [Suspect]
     Indication: PRODUCT USED FOR UNKNOWN INDICATION
     Dosage: TRPL
     Route: 062

REACTIONS (2)
  - FOETAL GROWTH RESTRICTION [None]
  - MATERNAL DRUGS AFFECTING FOETUS [None]
